FAERS Safety Report 17269623 (Version 1)
Quarter: 2020Q1

REPORT INFORMATION
  Report Type: Spontaneous
  Country: AU (occurrence: AU)
  Receive Date: 20200114
  Receipt Date: 20200114
  Transmission Date: 20200409
  Serious: Yes (Death, Other)
  Sender: FDA-Public Use
  Company Number: AU-SA-2020SA008440

PATIENT
  Age: 85 Year
  Sex: Male

DRUGS (10)
  1. CODEINE PHOSPHATE [Suspect]
     Active Substance: CODEINE PHOSPHATE
     Indication: PRODUCT USED FOR UNKNOWN INDICATION
     Dosage: UNK UNK, UNK
     Route: 065
  2. MINIPRESS [Suspect]
     Active Substance: PRAZOSIN HYDROCHLORIDE
     Indication: PRODUCT USED FOR UNKNOWN INDICATION
     Dosage: UNK UNK, UNK
     Route: 065
  3. KARVEA TABS [Suspect]
     Active Substance: IRBESARTAN
     Indication: PRODUCT USED FOR UNKNOWN INDICATION
     Dosage: UNK UNK, UNK
     Route: 065
  4. ADAPALENE. [Suspect]
     Active Substance: ADAPALENE
     Indication: PRODUCT USED FOR UNKNOWN INDICATION
     Dosage: UNK UNK, UNK
     Route: 065
  5. OXYCODONE HYDROCHLORIDE. [Suspect]
     Active Substance: OXYCODONE HYDROCHLORIDE
     Indication: PRODUCT USED FOR UNKNOWN INDICATION
     Dosage: UNK UNK, UNK
     Route: 065
  6. LENVATINIB [Suspect]
     Active Substance: LENVATINIB
     Indication: PRODUCT USED FOR UNKNOWN INDICATION
     Dosage: UNK UNK, UNK
     Route: 065
  7. METFORMIN HYDROCHLORIDE. [Suspect]
     Active Substance: METFORMIN HYDROCHLORIDE
     Indication: PRODUCT USED FOR UNKNOWN INDICATION
     Dosage: UNK UNK, UNK
     Route: 065
  8. EVEROLIMUS. [Suspect]
     Active Substance: EVEROLIMUS
     Indication: PRODUCT USED FOR UNKNOWN INDICATION
     Dosage: UNK UNK, UNK
     Route: 065
  9. INDAPAMIDE/PERINDOPRIL [Suspect]
     Active Substance: INDAPAMIDE\PERINDOPRIL
     Indication: PRODUCT USED FOR UNKNOWN INDICATION
     Dosage: UNK UNK, UNK
     Route: 065
  10. FISH OIL;UBIDECARENONE [DIETARY SUPPLEMENT] [Suspect]
     Active Substance: DIETARY SUPPLEMENT
     Indication: PRODUCT USED FOR UNKNOWN INDICATION
     Dosage: UNK UNK, UNK
     Route: 065

REACTIONS (31)
  - Bilirubin conjugated [Fatal]
  - Blood lactate dehydrogenase increased [Fatal]
  - Haemoglobin decreased [Fatal]
  - Seizure [Fatal]
  - Blood pressure measurement [Fatal]
  - Platelet count decreased [Fatal]
  - Blood creatinine decreased [Fatal]
  - Blood thyroid stimulating hormone increased [Fatal]
  - Fall [Fatal]
  - Lipase increased [Fatal]
  - Hypertension [Fatal]
  - Blood fibrinogen increased [Fatal]
  - Haematemesis [Fatal]
  - Overdose [Fatal]
  - Blood albumin decreased [Fatal]
  - Gamma-glutamyltransferase [Fatal]
  - Blood phosphorus decreased [Fatal]
  - Gastric ulcer [Fatal]
  - Internal haemorrhage [Fatal]
  - White blood cell disorder [Fatal]
  - Blood magnesium decreased [Fatal]
  - Blood alkaline phosphatase increased [Fatal]
  - Blood glucose increased [Fatal]
  - Haemoptysis [Fatal]
  - Neutrophil count increased [Fatal]
  - Osteopenia [Fatal]
  - Urosepsis [Fatal]
  - Amylase decreased [Fatal]
  - Blood triglycerides increased [Fatal]
  - Blood urea increased [Fatal]
  - Electrolyte imbalance [Fatal]
